FAERS Safety Report 20812084 (Version 3)
Quarter: 2022Q4

REPORT INFORMATION
  Report Type: Report from Study
  Country: US (occurrence: US)
  Receive Date: 20220511
  Receipt Date: 20221109
  Transmission Date: 20230113
  Serious: Yes (Hospitalization, Other)
  Sender: FDA-Public Use
  Company Number: US-BRISTOL-MYERS SQUIBB COMPANY-2022-029716

PATIENT
  Age: 79 Year
  Sex: Male
  Weight: 88.45 kg

DRUGS (2)
  1. REVLIMID [Suspect]
     Active Substance: LENALIDOMIDE
     Indication: Plasma cell myeloma
     Dosage: FREQUENCY 1-21 DAYS, 28 DAY CYCLE
     Route: 048
  2. REVLIMID [Suspect]
     Active Substance: LENALIDOMIDE
     Indication: Plasma cell myeloma in remission
     Dosage: 21 OUT OF 28 DAYS
     Route: 048

REACTIONS (7)
  - Illness [Unknown]
  - Tremor [Unknown]
  - Hypotension [Unknown]
  - Head injury [Unknown]
  - Nausea [Unknown]
  - Malaise [Unknown]
  - Fall [Unknown]
